FAERS Safety Report 8590730-2 (Version None)
Quarter: 2012Q3

REPORT INFORMATION
  Report Type: 
  Country: None (occurrence: None)
  Receive Date: 20120703
  Receipt Date: 20120716
  Transmission Date: 20120928
  Serious: Yes (Life-Threatening, Hospitalization, Congenital Anomaly, Other)
  Sender: FDA-Public Use
  Company Number: E2B_00000297

PATIENT
  Age: 0 Year
  Sex: Female
  Weight: 3.5 kg

DRUGS (2)
  1. LAMOTRIGINE [Suspect]
     Indication: EPILEPSY
     Dosage: 275 MG (UNK), TRANSPLACENTAL; 500 MG (UNK), TRANSPLACENTAL
     Route: 064
     Dates: end: 20110212
  2. FOLIC ACID (FOLSAURE) [Concomitant]

REACTIONS (13)
  - TALIPES [None]
  - ATRIAL SEPTAL DEFECT [None]
  - CYANOSIS NEONATAL [None]
  - PELVI-URETERIC OBSTRUCTION [None]
  - DYSMORPHISM [None]
  - RETROGNATHIA [None]
  - CONGENITAL URETERIC ANOMALY [None]
  - EYELID DISORDER [None]
  - BRADYCARDIA NEONATAL [None]
  - PYELOCALIECTASIS [None]
  - MATERNAL DRUGS AFFECTING FOETUS [None]
  - PREMATURE BABY [None]
  - NEONATAL RESPIRATORY DISTRESS SYNDROME [None]
